FAERS Safety Report 5191384-8 (Version None)
Quarter: 2006Q4

REPORT INFORMATION
  Report Type: 
  Country: None (occurrence: None)
  Receive Date: 20061226
  Receipt Date: 20061201
  Transmission Date: 20070319
  Serious: Yes (Other)
  Sender: FDA-Public Use
  Company Number: US-AMGEN-STX201983

PATIENT
  Sex: Female

DRUGS (5)
  1. ENBREL [Suspect]
     Indication: PSORIATIC ARTHROPATHY
     Dates: start: 20050203, end: 20060817
  2. ENBREL [Suspect]
     Indication: PSORIASIS
     Dates: start: 20060101, end: 20060817
  3. NAPROXEN [Concomitant]
     Dates: start: 20040101
  4. DOVONEX [Concomitant]
     Dates: start: 20061003
  5. ULTRAVATE [Concomitant]
     Dates: start: 20061003

REACTIONS (7)
  - CEREBRAL DISORDER [None]
  - DIZZINESS [None]
  - HYPOAESTHESIA [None]
  - HYPOAESTHESIA FACIAL [None]
  - MEMORY IMPAIRMENT [None]
  - NUCLEAR MAGNETIC RESONANCE IMAGING ABNORMAL [None]
  - PARAESTHESIA [None]
